FAERS Safety Report 4719640-5 (Version None)
Quarter: 2005Q3

REPORT INFORMATION
  Report Type: 
  Country: None (occurrence: None)
  Receive Date: 20050721
  Receipt Date: 20040506
  Transmission Date: 20060218
  Serious: No
  Sender: FDA-Public Use
  Company Number: US-GLAXOSMITHKLINE-A0510475A

PATIENT
  Sex: Female
  Weight: 81.8 kg

DRUGS (3)
  1. AVANDIA [Suspect]
     Dosage: 4MG TWICE PER DAY
     Route: 048
     Dates: start: 20010716
  2. INSULIN [Concomitant]
     Route: 058
  3. GLUCOPHAGE [Concomitant]
     Dosage: 1000MG TWICE PER DAY
     Route: 048

REACTIONS (5)
  - ASTHENIA [None]
  - CARDIAC DISORDER [None]
  - DYSPNOEA [None]
  - FLUID RETENTION [None]
  - WEIGHT INCREASED [None]
